FAERS Safety Report 11820106 (Version 1)
Quarter: 2015Q4

REPORT INFORMATION
  Report Type: Report from Study
  Country: US (occurrence: US)
  Receive Date: 20151210
  Receipt Date: 20151210
  Transmission Date: 20160305
  Serious: Yes (Hospitalization)
  Sender: FDA-Public Use
  Company Number: PHHY2014US103901

PATIENT
  Age: 68 Year
  Sex: Female
  Weight: 71 kg

DRUGS (5)
  1. GILENYA [Suspect]
     Active Substance: FINGOLIMOD HYDROCHLORIDE
     Dosage: 1 DF, QD
     Route: 048
  2. GILENYA [Suspect]
     Active Substance: FINGOLIMOD HYDROCHLORIDE
     Indication: PRODUCT USED FOR UNKNOWN INDICATION
     Dosage: TAKEN WITH LIQUID
     Route: 048
     Dates: start: 20140721, end: 20140815
  3. DOCUSATE [Concomitant]
     Active Substance: DOCUSATE
     Indication: CONSTIPATION
     Dosage: 100 MG, UNK
     Route: 048
     Dates: start: 20140813
  4. POTASSIUM CHLORIDE. [Concomitant]
     Active Substance: POTASSIUM CHLORIDE
     Indication: HYPERTENSION
     Dosage: 10 MEQ, UNK
     Route: 042
     Dates: start: 20140813
  5. LOSARTAN. [Concomitant]
     Active Substance: LOSARTAN
     Indication: HYPERTENSION
     Route: 048
     Dates: start: 20140813

REACTIONS (11)
  - Hypernatraemia [Unknown]
  - Uterine enlargement [Unknown]
  - Multiple sclerosis [Unknown]
  - Blood glucose increased [Unknown]
  - Urinary tract infection [Recovered/Resolved]
  - Constipation [Unknown]
  - Muscle spasms [Unknown]
  - Visual impairment [Unknown]
  - Asthenia [Unknown]
  - Back pain [Recovered/Resolved]
  - Hypertension [Unknown]

NARRATIVE: CASE EVENT DATE: 20140721
